FAERS Safety Report 22356836 (Version 1)
Quarter: 2023Q2

REPORT INFORMATION
  Report Type: Spontaneous
  Country: US (occurrence: None)
  Receive Date: 20230523
  Receipt Date: 20230523
  Transmission Date: 20230721
  Serious: No
  Sender: FDA-Public Use
  Company Number: US-Merck Healthcare KGaA-9404075

PATIENT
  Sex: Female

DRUGS (4)
  1. MAVENCLAD [Suspect]
     Active Substance: CLADRIBINE
     Indication: Multiple sclerosis
     Dosage: CYCLE ONE MONTH ONE THERAPY
     Route: 048
     Dates: start: 20210812
  2. MAVENCLAD [Suspect]
     Active Substance: CLADRIBINE
     Dosage: CYCLE ONE MONTH TWO THERAPY
     Route: 048
     Dates: start: 20210910, end: 20210914
  3. MAVENCLAD [Suspect]
     Active Substance: CLADRIBINE
     Dosage: CYCLE TWO MONTH ONE THERAPY
     Route: 048
     Dates: start: 20220823
  4. MAVENCLAD [Suspect]
     Active Substance: CLADRIBINE
     Dosage: CYCLE TWO MONTH TWO THERAPY
     Route: 048
     Dates: start: 20220919, end: 20220923

REACTIONS (2)
  - Abdominal discomfort [Unknown]
  - Fatigue [Unknown]
